FAERS Safety Report 23837578 (Version 2)
Quarter: 2024Q2

REPORT INFORMATION
  Report Type: Spontaneous
  Country: US (occurrence: US)
  Receive Date: 20240509
  Receipt Date: 20240517
  Transmission Date: 20240716
  Serious: Yes (Hospitalization)
  Sender: FDA-Public Use
  Company Number: US-IPSEN Group, Research and Development-2024-07763

PATIENT
  Age: 50 Year
  Sex: Female
  Weight: 77 kg

DRUGS (13)
  1. TAZVERIK [Suspect]
     Active Substance: TAZEMETOSTAT HYDROBROMIDE
     Indication: Follicular lymphoma stage I
     Route: 048
     Dates: start: 20240405
  2. ACYCLOVIR [Concomitant]
     Active Substance: ACYCLOVIR
  3. LORATADINE [Concomitant]
     Active Substance: LORATADINE
  4. VITAMIN B COMPLEX [Concomitant]
     Active Substance: CYANOCOBALAMIN\DEXPANTHENOL\NIACINAMIDE\PYRIDOXINE HYDROCHLORIDE\RIBOFLAVIN 5^-PHOSPHATE SODIUM\THIA
  5. FISH OIL [Concomitant]
     Active Substance: FISH OIL
  6. VITAMIN B12 [Concomitant]
     Active Substance: CYANOCOBALAMIN
  7. D-MANNOSE [Concomitant]
  8. ESTRADIOL [Concomitant]
     Active Substance: ESTRADIOL
  9. FOLIC ACID [Concomitant]
     Active Substance: FOLIC ACID
     Dosage: VAGINAL CREAM
  10. LEVOFLOXACIN [Concomitant]
     Active Substance: LEVOFLOXACIN
     Dosage: VAGINAL CREAM
  11. ONDANSETRON [Concomitant]
     Active Substance: ONDANSETRON
     Dosage: VAGINAL CREAM
  12. SELENIUM [Concomitant]
     Active Substance: SELENIUM
     Dosage: VAGINAL CREAM
  13. VITAMIN D3 [Concomitant]
     Active Substance: CHOLECALCIFEROL
     Dosage: VAGINAL CREAM

REACTIONS (1)
  - Febrile neutropenia [Recovering/Resolving]
